FAERS Safety Report 9592811 (Version 1)
Quarter: 2013Q3

REPORT INFORMATION
  Report Type: Spontaneous
  Country: US (occurrence: None)
  Receive Date: 20130930
  Receipt Date: 20130930
  Transmission Date: 20140515
  Serious: Yes (Other)
  Sender: FDA-Public Use
  Company Number: 1000045973

PATIENT
  Age: 65 Year
  Sex: Female

DRUGS (7)
  1. LINZESS [Suspect]
     Indication: CONSTIPATION
     Dates: start: 20130612
  2. CYMBALTA (DULOXETINE HYDROCHLORIDE) [Concomitant]
  3. HYDROCHLOROTHIAZIDE [Concomitant]
  4. PREMARIN (ESTROGENS CONJUGATED) [Concomitant]
  5. GLYBURIDE (GLIBENCLAMIDE) [Concomitant]
  6. FUROSEMIDE [Concomitant]
  7. PRAVASTATIN [Concomitant]

REACTIONS (1)
  - Diarrhoea [None]
